FAERS Safety Report 4977062-6 (Version None)
Quarter: 2006Q2

REPORT INFORMATION
  Report Type: 
  Country: None (occurrence: None)
  Receive Date: 20060413
  Receipt Date: 20060327
  Transmission Date: 20061013
  Serious: No
  Sender: FDA-Public Use
  Company Number: PAR_0577_2006

PATIENT
  Age: 38 Year
  Sex: Female
  Weight: 58.9676 kg

DRUGS (3)
  1. MECLIZINE [Suspect]
     Dosage: 12.5 MG ONCE PO
     Route: 048
     Dates: start: 20040401, end: 20040401
  2. BIRTH CONTROL PILLS [Concomitant]
  3. ALLERGY MEDICATIONS [Concomitant]

REACTIONS (2)
  - LARYNGEAL OEDEMA [None]
  - REACTION TO COLOURING [None]
